FAERS Safety Report 5898178-6 (Version None)
Quarter: 2008Q3

REPORT INFORMATION
  Report Type: 
  Country: None (occurrence: None)
  Receive Date: 20080925
  Receipt Date: 20080918
  Transmission Date: 20090109
  Serious: Yes (Other)
  Sender: FDA-Public Use
  Company Number: US-MERCK-0809USA02154

PATIENT
  Age: 74 Year
  Sex: Male

DRUGS (6)
  1. JANUVIA [Suspect]
     Indication: DIABETES MELLITUS
     Route: 048
     Dates: start: 20080901, end: 20080901
  2. METFORMIN [Concomitant]
     Route: 065
  3. ACTOS [Concomitant]
     Route: 065
  4. ANDROGEL [Concomitant]
     Route: 065
  5. ACCUPRIL [Concomitant]
     Route: 065
  6. TOPROL-XL [Concomitant]
     Route: 065

REACTIONS (1)
  - PANCREATITIS [None]
